FAERS Safety Report 15369116 (Version 1)
Quarter: 2018Q3

REPORT INFORMATION
  Report Type: Spontaneous
  Country: FR (occurrence: FR)
  Receive Date: 20180911
  Receipt Date: 20180911
  Transmission Date: 20181010
  Serious: Yes (Hospitalization)
  Sender: FDA-Public Use
  Company Number: FR-TEVA-2018-FR-953214

PATIENT
  Age: 32 Year
  Sex: Male
  Weight: 86 kg

DRUGS (4)
  1. GENTAMICINE [Concomitant]
     Active Substance: GENTAMICIN
     Dosage: 400 MILLIGRAM DAILY;
     Route: 042
     Dates: start: 20180704, end: 20180709
  2. AMOXICILLINE [Concomitant]
     Active Substance: AMOXICILLIN
     Dosage: 4 GRAM DAILY;
     Route: 042
     Dates: start: 20180704, end: 20180710
  3. LEVOFLOXACINE [Suspect]
     Active Substance: LEVOFLOXACIN
     Indication: ARTHRITIS
     Dosage: 1000 MILLIGRAM DAILY;
     Route: 048
     Dates: start: 20180712
  4. PIPERACILLINE BASE [Suspect]
     Active Substance: PIPERACILLIN SODIUM
     Indication: ARTHRITIS
     Dosage: 12 GRAM DAILY;
     Route: 042
     Dates: start: 20180710, end: 20180724

REACTIONS (4)
  - Hepatitis [Recovered/Resolved]
  - Hypertriglyceridaemia [Recovered/Resolved]
  - Hyperferritinaemia [Recovered/Resolved]
  - Pyrexia [Recovered/Resolved]

NARRATIVE: CASE EVENT DATE: 20180722
